FAERS Safety Report 5834384-4 (Version None)
Quarter: 2008Q3

REPORT INFORMATION
  Report Type: 
  Country: None (occurrence: None)
  Receive Date: 20080805
  Receipt Date: 20080724
  Transmission Date: 20090109
  Serious: Yes (Death)
  Sender: FDA-Public Use
  Company Number: PE-PFIZER INC-2008053660

PATIENT
  Age: 76 Year
  Sex: Female

DRUGS (3)
  1. SUTENT [Suspect]
     Indication: BREAST CANCER
     Dates: start: 20061001, end: 20080401
  2. ENALAPRIL MALEATE [Concomitant]
  3. CODEINE SUL TAB [Concomitant]

REACTIONS (2)
  - BREAST CANCER [None]
  - DISEASE PROGRESSION [None]
